FAERS Safety Report 7678571-1 (Version None)
Quarter: 2011Q3

REPORT INFORMATION
  Report Type: 
  Country: None (occurrence: None)
  Receive Date: 20110811
  Receipt Date: 20110801
  Transmission Date: 20111222
  Serious: Yes (Hospitalization, Other)
  Sender: FDA-Public Use
  Company Number: US-JNJFOC-20100603641

PATIENT
  Sex: Female
  Weight: 68.3 kg

DRUGS (4)
  1. REMICADE [Suspect]
     Indication: CROHN'S DISEASE
     Route: 042
     Dates: start: 20070508
  2. REMICADE [Suspect]
     Dosage: TOTAL 22 DOSES
     Route: 042
     Dates: start: 20100216
  3. MIRALAX [Concomitant]
  4. PANTOPRAZOLE [Concomitant]

REACTIONS (1)
  - CROHN'S DISEASE [None]
